FAERS Safety Report 5864042-1 (Version None)
Quarter: 2008Q3

REPORT INFORMATION
  Report Type: 
  Country: None (occurrence: None)
  Receive Date: 20080829
  Receipt Date: 20080818
  Transmission Date: 20090109
  Serious: Yes (Other)
  Sender: FDA-Public Use
  Company Number: CA-JNJCH-2008022034

PATIENT
  Sex: Female

DRUGS (3)
  1. BENADRYL [Suspect]
     Indication: PREMEDICATION
     Dosage: TEXT:50 MG
     Route: 042
  2. REMICADE [Suspect]
     Indication: DRUG USE FOR UNKNOWN INDICATION
     Dosage: TEXT:500 MG
     Route: 042
  3. SODIUM CHLORIDE 0.9% [Concomitant]
     Indication: PREMEDICATION
     Dosage: TEXT:UNSPECIFIED
     Route: 042

REACTIONS (4)
  - DISTURBANCE IN ATTENTION [None]
  - DYSPNOEA [None]
  - FEELING ABNORMAL [None]
  - LYMPHADENOPATHY [None]
